FAERS Safety Report 5821957-8 (Version None)
Quarter: 2008Q3

REPORT INFORMATION
  Report Type: 
  Country: None (occurrence: None)
  Receive Date: 20080724
  Receipt Date: 20080717
  Transmission Date: 20090109
  Serious: Yes (Hospitalization)
  Sender: FDA-Public Use
  Company Number: US-GENENTECH-258278

PATIENT
  Sex: Female
  Weight: 88.7 kg

DRUGS (9)
  1. RITUXAN [Suspect]
     Indication: NEUROMYELITIS OPTICA
     Dosage: 1000 MG, UNK
     Route: 042
  2. ASPIRIN [Concomitant]
     Indication: DRUG USE FOR UNKNOWN INDICATION
  3. BACLOFEN [Concomitant]
     Indication: DRUG USE FOR UNKNOWN INDICATION
  4. LASIX [Concomitant]
     Indication: DRUG USE FOR UNKNOWN INDICATION
  5. LYRICA [Concomitant]
     Indication: DRUG USE FOR UNKNOWN INDICATION
  6. NEXIUM [Concomitant]
     Indication: DRUG USE FOR UNKNOWN INDICATION
  7. PAXIL [Concomitant]
     Indication: DRUG USE FOR UNKNOWN INDICATION
  8. TRICOR [Concomitant]
     Indication: DRUG USE FOR UNKNOWN INDICATION
  9. VYTORIN [Concomitant]
     Indication: DRUG USE FOR UNKNOWN INDICATION

REACTIONS (2)
  - HERPES ZOSTER [None]
  - MENINGITIS ASEPTIC [None]
